FAERS Safety Report 14260809 (Version 3)
Quarter: 2024Q3

REPORT INFORMATION
  Report Type: Report from Study
  Country: US (occurrence: US)
  Receive Date: 20171207
  Receipt Date: 20240828
  Transmission Date: 20241016
  Serious: No
  Sender: JAZZ
  Company Number: US-JAZZ-2017-US-016148

PATIENT
  Age: 11 Year
  Sex: Male

DRUGS (9)
  1. XYREM [Suspect]
     Active Substance: SODIUM OXYBATE
     Indication: Narcolepsy
     Dosage: 1 G, BID
     Route: 048
     Dates: start: 201701, end: 201701
  2. XYREM [Suspect]
     Active Substance: SODIUM OXYBATE
     Indication: Cataplexy
     Dosage: DOSE ADJUSTMENT
     Route: 048
     Dates: start: 201701, end: 201710
  3. XYREM [Suspect]
     Active Substance: SODIUM OXYBATE
     Dosage: 3.5 G, QD; FIRST DOSE
     Route: 048
     Dates: start: 201710, end: 2017
  4. XYREM [Suspect]
     Active Substance: SODIUM OXYBATE
     Dosage: 3 G, QD; SECOND DOSE
     Route: 048
     Dates: start: 201710, end: 2017
  5. XYREM [Suspect]
     Active Substance: SODIUM OXYBATE
     Dosage: 3.5 G, QD; FIRST DOSE
     Route: 048
     Dates: start: 2017
  6. XYREM [Suspect]
     Active Substance: SODIUM OXYBATE
     Dosage: 3 G, QD; SECOND DOSE
     Route: 048
     Dates: start: 2017
  7. XYREM [Suspect]
     Active Substance: SODIUM OXYBATE
     Dosage: UNK
  8. AMOXICILLIN [Suspect]
     Active Substance: AMOXICILLIN
     Indication: Product used for unknown indication
  9. EFFEXOR [Concomitant]
     Active Substance: VENLAFAXINE HYDROCHLORIDE
     Indication: Product used for unknown indication

REACTIONS (1)
  - Febrile convulsion [Unknown]

NARRATIVE: CASE EVENT DATE: 20171101
